FAERS Safety Report 10279463 (Version 1)
Quarter: 2014Q3

REPORT INFORMATION
  Report Type: Not Available
  Country: US (occurrence: US)
  Receive Date: 20140707
  Receipt Date: 20140707
  Transmission Date: 20150326
  Serious: No
  Sender: FDA-Public Use
  Company Number: US-LUPIN PHARMACEUTICALS INC.-E2B_00001443

PATIENT
  Sex: Male

DRUGS (1)
  1. SIMVASTATIN TABLETS  USP 40 MG [Suspect]
     Active Substance: SIMVASTATIN
     Indication: BLOOD CHOLESTEROL INCREASED
     Dates: start: 201307

REACTIONS (1)
  - Osteoporosis [Not Recovered/Not Resolved]
